FAERS Safety Report 10176032 (Version 2)
Quarter: 2014Q2

REPORT INFORMATION
  Report Type: Spontaneous
  Country: US (occurrence: US)
  Receive Date: 20140516
  Receipt Date: 20140521
  Transmission Date: 20141212
  Serious: Yes (Death)
  Sender: FDA-Public Use
  Company Number: US-ROCHE-1402416

PATIENT
  Age: 25 Year
  Sex: Female

DRUGS (16)
  1. KLONOPIN [Suspect]
     Indication: PRODUCT USED FOR UNKNOWN INDICATION
     Route: 065
  2. DIAZEPAM [Suspect]
     Indication: PRODUCT USED FOR UNKNOWN INDICATION
     Route: 065
  3. ALPRAZOLAM [Concomitant]
  4. HYDROMORPHONE [Concomitant]
  5. OXYCODONE [Concomitant]
  6. PROMETHAZINE [Concomitant]
  7. ATIVAN [Concomitant]
  8. XANAX [Concomitant]
  9. DILAUDID [Concomitant]
     Route: 065
  10. TORADOL [Concomitant]
     Route: 065
  11. ABILIFY [Concomitant]
  12. FENTANYL [Concomitant]
     Route: 065
  13. PHENERGAN [Concomitant]
     Route: 065
  14. PHENERGAN [Concomitant]
     Route: 065
  15. CYMBALTA [Concomitant]
     Route: 065
  16. MORPHINE [Concomitant]

REACTIONS (1)
  - Toxicity to various agents [Fatal]
